FAERS Safety Report 7235969-3 (Version None)
Quarter: 2011Q1

REPORT INFORMATION
  Report Type: 
  Country: None (occurrence: None)
  Receive Date: 20110120
  Receipt Date: 20110113
  Transmission Date: 20110831
  Serious: Yes (Other)
  Sender: FDA-Public Use
  Company Number: B0679051A

PATIENT
  Sex: Female

DRUGS (3)
  1. FLURBIPROFEN [Concomitant]
     Indication: PAIN
     Dosage: 150MG PER DAY
     Route: 042
     Dates: start: 20080305, end: 20080306
  2. LORCAM [Concomitant]
     Indication: PAIN
     Dosage: 12MG PER DAY
     Route: 048
     Dates: start: 20080305, end: 20080326
  3. ARIXTRA [Suspect]
     Indication: THROMBOSIS PROPHYLAXIS
     Dosage: 2.5MG PER DAY
     Route: 058
     Dates: start: 20080307, end: 20080309

REACTIONS (3)
  - JOINT SWELLING [None]
  - ANAEMIA [None]
  - HAEMOGLOBIN DECREASED [None]
